FAERS Safety Report 9486460 (Version 2)
Quarter: 2013Q4

REPORT INFORMATION
  Report Type: Report from Study
  Country: JP (occurrence: JP)
  Receive Date: 20130829
  Receipt Date: 20131113
  Transmission Date: 20140711
  Serious: Yes (Death, Hospitalization)
  Sender: FDA-Public Use
  Company Number: JP-ACTELION-A-CH2013-87814

PATIENT
  Age: 60 Year
  Sex: Male
  Weight: 78.2 kg

DRUGS (8)
  1. TRACLEER [Suspect]
     Indication: PULMONARY HYPERTENSION
     Dosage: 62.5 MG, BID
     Route: 048
     Dates: start: 20120724, end: 20120812
  2. BERAPROST SODIUM [Concomitant]
  3. SILDENAFIL CITRATE [Concomitant]
  4. METHYLPREDNISOLONE [Concomitant]
  5. AZATHIOPRINE [Concomitant]
  6. VOGLIBOSE [Concomitant]
  7. GLIMEPIRIDE [Concomitant]
  8. OXYGEN [Concomitant]

REACTIONS (3)
  - Sudden death [Fatal]
  - Loss of consciousness [Unknown]
  - Cardio-respiratory arrest [Unknown]
